FAERS Safety Report 15225946 (Version 4)
Quarter: 2018Q3

REPORT INFORMATION
  Report Type: Report from Study
  Country: None (occurrence: NL)
  Receive Date: 20180801
  Receipt Date: 20180911
  Transmission Date: 20181010
  Serious: Yes (Hospitalization)
  Sender: FDA-Public Use
  Company Number: NL-ABBVIE-18K-114-2276871-00

PATIENT
  Age: 74 Year
  Sex: Female

DRUGS (1)
  1. DUODOPA [Suspect]
     Active Substance: CARBIDOPA\LEVODOPA
     Indication: PARKINSON^S DISEASE
     Dosage: MD 13, CD 1.3, ED 2.5
     Route: 050
     Dates: start: 20171211

REACTIONS (5)
  - Articular calcification [Not Recovered/Not Resolved]
  - Arthropathy [Not Recovered/Not Resolved]
  - Underdose [Recovered/Resolved]
  - Arthralgia [Recovered/Resolved]
  - Joint dislocation [Not Recovered/Not Resolved]

NARRATIVE: CASE EVENT DATE: 201802
